FAERS Safety Report 9647948 (Version 3)
Quarter: 2013Q4

REPORT INFORMATION
  Report Type: Spontaneous
  Country: US (occurrence: US)
  Receive Date: 20131028
  Receipt Date: 20131129
  Transmission Date: 20140711
  Serious: No
  Sender: FDA-Public Use
  Company Number: US-PFIZER INC-2013303965

PATIENT
  Age: 52 Year
  Sex: Female

DRUGS (5)
  1. LYRICA [Suspect]
     Indication: RESTLESS LEGS SYNDROME
     Dosage: 450 MG, 1X/DAY (150 MG 3 TAB QHS)
     Route: 048
     Dates: start: 20130701, end: 20131021
  2. PROGRAF [Concomitant]
     Dosage: UNK
  3. ZOLOFT [Concomitant]
     Dosage: UNK
  4. AMBIEN [Concomitant]
     Dosage: UNK
  5. REQUIP [Concomitant]
     Dosage: UNK

REACTIONS (3)
  - Weight increased [Unknown]
  - Somnolence [Unknown]
  - Malaise [Unknown]
